FAERS Safety Report 19154484 (Version 1)
Quarter: 2021Q2

REPORT INFORMATION
  Report Type: Report from Study
  Country: JP (occurrence: JP)
  Receive Date: 20210419
  Receipt Date: 20210419
  Transmission Date: 20210717
  Serious: Yes (Other)
  Sender: FDA-Public Use
  Company Number: JP-PFIZER INC-2021411719

PATIENT
  Age: 26 Year
  Sex: Female

DRUGS (6)
  1. AMIODARONE [Suspect]
     Active Substance: AMIODARONE
     Indication: CONGESTIVE CARDIOMYOPATHY
     Dosage: UNK
  2. CARVEDILOL. [Suspect]
     Active Substance: CARVEDILOL
     Indication: CONGESTIVE CARDIOMYOPATHY
     Dosage: UNK
  3. SPIRONOLACTONE. [Suspect]
     Active Substance: SPIRONOLACTONE
     Indication: CONGESTIVE CARDIOMYOPATHY
     Dosage: UNK
  4. FUROSEMIDE. [Suspect]
     Active Substance: FUROSEMIDE
     Indication: CONGESTIVE CARDIOMYOPATHY
     Dosage: UNK
  5. DIGOXIN. [Suspect]
     Active Substance: DIGOXIN
     Indication: CONGESTIVE CARDIOMYOPATHY
     Dosage: UNK
  6. MEXILETINE [Suspect]
     Active Substance: MEXILETINE
     Indication: CONGESTIVE CARDIOMYOPATHY
     Dosage: UNK

REACTIONS (3)
  - Atrial fibrillation [Unknown]
  - Pulmonary hypertension [Unknown]
  - Maternal exposure during pregnancy [Unknown]
